FAERS Safety Report 20654842 (Version 2)
Quarter: 2023Q1

REPORT INFORMATION
  Report Type: Report from Study
  Country: US (occurrence: US)
  Receive Date: 20220330
  Receipt Date: 20230302
  Transmission Date: 20230417
  Serious: Yes (Hospitalization, Other)
  Sender: FDA-Public Use
  Company Number: US-TAKEDA-2022TUS020189

PATIENT
  Sex: Male
  Weight: 77 kg

DRUGS (2)
  1. BRIGATINIB [Suspect]
     Active Substance: BRIGATINIB
     Indication: Lung neoplasm malignant
     Dosage: 180 MILLIGRAM, QD
     Route: 065
     Dates: start: 202202
  2. BRIGATINIB [Suspect]
     Active Substance: BRIGATINIB
     Indication: Bronchial carcinoma

REACTIONS (4)
  - Escherichia bacteraemia [Recovering/Resolving]
  - Sepsis [Recovering/Resolving]
  - Pneumonia [Recovering/Resolving]
  - Drug ineffective [Unknown]
